FAERS Safety Report 12749536 (Version 5)
Quarter: 2017Q4

REPORT INFORMATION
  Report Type: Spontaneous
  Country: JP (occurrence: JP)
  Receive Date: 20160916
  Receipt Date: 20171003
  Transmission Date: 20180320
  Serious: Yes (Other)
  Sender: FDA-Public Use
  Company Number: PHHY2016JP126787

PATIENT
  Age: 63 Year
  Sex: Female

DRUGS (2)
  1. AREDIA [Suspect]
     Active Substance: PAMIDRONATE DISODIUM
     Indication: METASTASES TO BONE
     Dosage: 45 MG, UNK
     Route: 042
     Dates: start: 200512, end: 20061030
  2. ZOMETA [Suspect]
     Active Substance: ZOLEDRONIC ACID
     Indication: METASTASES TO BONE
     Dosage: 4 MG, UNK
     Route: 041
     Dates: start: 200611, end: 200708

REACTIONS (11)
  - Impaired healing [Recovering/Resolving]
  - Pain [Unknown]
  - Osteonecrosis of jaw [Recovering/Resolving]
  - Bone disorder [Not Recovered/Not Resolved]
  - Purulence [Unknown]
  - General physical health deterioration [Unknown]
  - Swelling [Unknown]
  - Toothache [Unknown]
  - Exposed bone in jaw [Unknown]
  - Erythema [Unknown]
  - Sinusitis [Unknown]

NARRATIVE: CASE EVENT DATE: 200708
